FAERS Safety Report 5843576-X (Version None)
Quarter: 2008Q3

REPORT INFORMATION
  Report Type: 
  Country: None (occurrence: None)
  Receive Date: 20080813
  Receipt Date: 20080507
  Transmission Date: 20090109
  Serious: No
  Sender: FDA-Public Use
  Company Number: A0726782A

PATIENT

DRUGS (1)
  1. COREG CR [Suspect]
     Route: 048

REACTIONS (1)
  - COGNITIVE DISORDER [None]
